FAERS Safety Report 20448295 (Version 4)
Quarter: 2022Q2

REPORT INFORMATION
  Report Type: Spontaneous
  Country: US (occurrence: US)
  Receive Date: 20220209
  Receipt Date: 20220523
  Transmission Date: 20220721
  Serious: No
  Sender: FDA-Public Use
  Company Number: US-NOVARTISTESTPH-NVSC2022US027450

PATIENT
  Age: 44 Year
  Sex: Female

DRUGS (1)
  1. KESIMPTA [Suspect]
     Active Substance: OFATUMUMAB
     Indication: Multiple sclerosis
     Dosage: 20 MG, QMO
     Route: 058
     Dates: start: 20220202

REACTIONS (4)
  - Feeling abnormal [Unknown]
  - Pain in extremity [Unknown]
  - Alopecia [Unknown]
  - Pruritus [Unknown]

NARRATIVE: CASE EVENT DATE: 20220202
